FAERS Safety Report 9981401 (Version 1)
Quarter: 2014Q1

REPORT INFORMATION
  Report Type: Spontaneous
  Country: US (occurrence: None)
  Receive Date: 20140306
  Receipt Date: 20140306
  Transmission Date: 20141002
  Serious: No
  Sender: FDA-Public Use
  Company Number: None

PATIENT
  Age: 28 Year
  Sex: Female
  Weight: 54.89 kg

DRUGS (1)
  1. LORAZEPAM 1 MG [Suspect]
     Indication: ANXIETY
     Dosage: 1 TABLET TWICE DAILY TAKEN BY MOUTH
     Route: 048
     Dates: start: 20140205, end: 20140217

REACTIONS (7)
  - Urticaria [None]
  - Anxiety [None]
  - Diarrhoea [None]
  - Weight decreased [None]
  - Dizziness [None]
  - Product substitution issue [None]
  - Product quality issue [None]
